FAERS Safety Report 8006534-5 (Version None)
Quarter: 2011Q4

REPORT INFORMATION
  Report Type: 
  Country: None (occurrence: None)
  Receive Date: 20111226
  Receipt Date: 20100820
  Transmission Date: 20120403
  Serious: Yes (Death, Other)
  Sender: FDA-Public Use
  Company Number: PHHY2010US092778

PATIENT
  Age: 53 Year
  Sex: Male

DRUGS (2)
  1. EVEROLIMUS [Suspect]
     Indication: RENAL CELL CARCINOMA
  2. CORTICOSTEROIDS [Concomitant]

REACTIONS (7)
  - PLEURAL EFFUSION [None]
  - ACUTE RESPIRATORY FAILURE [None]
  - NEOPLASM PROGRESSION [None]
  - NEOPLASM MALIGNANT [None]
  - ACUTE RESPIRATORY DISTRESS SYNDROME [None]
  - DYSPNOEA [None]
  - INTERSTITIAL LUNG DISEASE [None]
